FAERS Safety Report 8560744-7 (Version None)
Quarter: 2012Q3

REPORT INFORMATION
  Report Type: 
  Country: None (occurrence: None)
  Receive Date: 20120802
  Receipt Date: 20120726
  Transmission Date: 20120928
  Serious: Yes (Other)
  Sender: FDA-Public Use
  Company Number: US-B.I. PHARMACEUTICALS,INC./RIDGEFIELD-2012-BP-16670BP

PATIENT
  Sex: Female

DRUGS (9)
  1. FORTEO [Concomitant]
     Indication: OSTEOPOROSIS
     Dosage: 20 MCG
     Route: 058
  2. SPIRIVA [Suspect]
     Indication: COUGH
     Dosage: 18 MCG
     Route: 055
     Dates: start: 20110101
  3. SPIRIVA [Suspect]
     Route: 048
     Dates: start: 20120726
  4. EVOXAC [Concomitant]
     Indication: SJOGREN'S SYNDROME
     Dosage: 90 MG
     Route: 048
     Dates: start: 20050101
  5. LEVOXYL [Concomitant]
     Indication: HYPOTHYROIDISM
     Dosage: 75 MG
     Route: 048
     Dates: start: 19920101
  6. NEXIUM [Concomitant]
     Indication: HIATUS HERNIA
     Dosage: 80 MG
     Route: 048
     Dates: start: 20100101
  7. PROPYLENE GLYCOL [Concomitant]
     Indication: DRY EYE
     Route: 048
     Dates: start: 20060101
  8. PRAVASTATIN [Concomitant]
     Indication: BLOOD CHOLESTEROL ABNORMAL
     Dosage: 10 MG
     Route: 048
  9. METOPROLOL TARTRATE [Concomitant]
     Indication: HYPERTENSION
     Dosage: 25 MG
     Route: 048
     Dates: start: 20111001

REACTIONS (3)
  - PULMONARY HYPERTENSION [None]
  - INCORRECT ROUTE OF DRUG ADMINISTRATION [None]
  - HYPERTENSION [None]
